FAERS Safety Report 17871257 (Version 1)
Quarter: 2020Q2

REPORT INFORMATION
  Report Type: Report from Study
  Country: ES (occurrence: ES)
  Receive Date: 20200608
  Receipt Date: 20200608
  Transmission Date: 20200714
  Serious: Yes (Hospitalization)
  Sender: FDA-Public Use
  Company Number: ES-TEVA-2020-ES-1244495

PATIENT
  Age: 73 Year
  Sex: Female

DRUGS (6)
  1. OLMESARTAN + HIDROCLOROTIAZIDA [Suspect]
     Active Substance: HYDROCHLOROTHIAZIDE\OLMESARTAN MEDOXOMIL
     Indication: HYPERTENSION
     Dosage: 1 DOSAGE FORMS
     Route: 048
     Dates: start: 20151117, end: 20170324
  2. OMEPRAZOL (2141A) [Concomitant]
     Active Substance: OMEPRAZOLE
     Indication: PROPHYLAXIS
     Dosage: 20 MG
     Route: 048
  3. LERCANIDIPINO HIDROCLORURO (2757CH) [Interacting]
     Active Substance: LERCANIDIPINE HYDROCHLORIDE
     Indication: HYPERTENSION
     Dosage: 20 MG
     Route: 048
     Dates: start: 201402, end: 20170324
  4. ADIRO 100 MG COMPRIMIDOS GASTRORRESISTENTES EFG, 30 COMPRIMIDOS (POLIP [Interacting]
     Active Substance: ASPIRIN
     Dosage: 100 MG
     Route: 048
     Dates: start: 20151117, end: 20170324
  5. DUMIROX 50 MG COMPRIMIDOS RECUBIERTOS CON PELICULA , 30 COMPRIMIDOS [Concomitant]
     Indication: ANXIETY DISORDER
     Dosage: 50 MG
     Route: 048
     Dates: start: 201502, end: 20170324
  6. PRAVASTATINA SODICA (7192SO) [Concomitant]
     Active Substance: PRAVASTATIN SODIUM
     Indication: DYSLIPIDAEMIA
     Dosage: 20 MG
     Route: 048
     Dates: end: 20170324

REACTIONS (2)
  - Drug interaction [Unknown]
  - Acute kidney injury [Recovered/Resolved]

NARRATIVE: CASE EVENT DATE: 20170324
